FAERS Safety Report 23145130 (Version 1)
Quarter: 2023Q4

REPORT INFORMATION
  Report Type: Spontaneous
  Country: GB (occurrence: GB)
  Receive Date: 20231103
  Receipt Date: 20231103
  Transmission Date: 20240110
  Serious: Yes (Death)
  Sender: FDA-Public Use
  Company Number: GB-AMGEN-GBRSP2023195023

PATIENT

DRUGS (10)
  1. TRASTUZUMAB [Suspect]
     Active Substance: TRASTUZUMAB
     Indication: Oesophageal cancer metastatic
     Dosage: UNK
     Route: 065
  2. TRASTUZUMAB [Suspect]
     Active Substance: TRASTUZUMAB
     Indication: Metastatic gastric cancer
  3. PACLITAXEL [Concomitant]
     Active Substance: PACLITAXEL
     Indication: Metastatic gastric cancer
     Dosage: UNK
     Route: 065
  4. PACLITAXEL [Concomitant]
     Active Substance: PACLITAXEL
     Indication: Oesophageal cancer metastatic
  5. DOCETAXEL [Concomitant]
     Active Substance: DOCETAXEL\DOCETAXEL ANHYDROUS
     Indication: Metastatic gastric cancer
     Dosage: UNK
     Route: 065
  6. DOCETAXEL [Concomitant]
     Active Substance: DOCETAXEL\DOCETAXEL ANHYDROUS
     Indication: Oesophageal cancer metastatic
  7. FLUOROURACIL;IRINOTECAN [Concomitant]
     Indication: Metastatic gastric cancer
     Dosage: UNK
     Route: 065
  8. FLUOROURACIL;IRINOTECAN [Concomitant]
     Indication: Oesophageal cancer metastatic
  9. CAPECITABINE;IRINOTECAN [Concomitant]
     Indication: Metastatic gastric cancer
     Dosage: UNK
     Route: 065
  10. CAPECITABINE;IRINOTECAN [Concomitant]
     Indication: Oesophageal cancer metastatic

REACTIONS (1)
  - Death [Fatal]
